FAERS Safety Report 7761541-2 (Version None)
Quarter: 2011Q3

REPORT INFORMATION
  Report Type: 
  Country: None (occurrence: None)
  Receive Date: 20110920
  Receipt Date: 20110909
  Transmission Date: 20111222
  Serious: Yes (Hospitalization, Other)
  Sender: FDA-Public Use
  Company Number: AR-AMGEN-ARGSP2011045105

PATIENT
  Age: 30 Year
  Sex: Female
  Weight: 37 kg

DRUGS (1)
  1. ENBREL [Suspect]
     Indication: RHEUMATOID ARTHRITIS
     Dosage: 50 MG, WEEKLY
     Route: 058
     Dates: start: 20010405

REACTIONS (5)
  - SPEECH DISORDER [None]
  - CONVULSION [None]
  - WEIGHT DECREASED [None]
  - INSOMNIA [None]
  - NERVOUS SYSTEM DISORDER [None]
